FAERS Safety Report 4917063-7 (Version None)
Quarter: 2006Q1

REPORT INFORMATION
  Report Type: 
  Country: None (occurrence: None)
  Receive Date: 20060214
  Receipt Date: 20060203
  Transmission Date: 20060701
  Serious: Yes (Other)
  Sender: FDA-Public Use
  Company Number: 200610498GDS

PATIENT
  Age: 61 Year
  Sex: Female

DRUGS (3)
  1. CIPROFLOXACIN [Suspect]
     Dosage: 500 MG, BID, ORAL
     Route: 048
  2. METRONIDAZOLE [Suspect]
     Dosage: 500 MG, TID, ORAL
     Route: 048
  3. ACETAMINOPHEN [Concomitant]

REACTIONS (5)
  - GOUT [None]
  - HYPERURICAEMIA [None]
  - NECK PAIN [None]
  - OEDEMA [None]
  - SHOULDER PAIN [None]
